FAERS Safety Report 14038660 (Version 1)
Quarter: 2017Q4

REPORT INFORMATION
  Report Type: Spontaneous
  Country: DE (occurrence: TR)
  Receive Date: 20171004
  Receipt Date: 20171004
  Transmission Date: 20180321
  Serious: Yes (Hospitalization, Other)
  Sender: FDA-Public Use
  Company Number: DE-TEVA-810129GER

PATIENT
  Age: 23 Year
  Sex: Female

DRUGS (2)
  1. METRONIDAZOLE (UNKNOWN MAH) [Suspect]
     Active Substance: METRONIDAZOLE
     Dosage: 1000 MILLIGRAM DAILY; AT NOON AND IN THE EVENING
     Route: 048
     Dates: start: 2017
  2. METRONIDAZOLE (UNKNOWN MAH) [Suspect]
     Active Substance: METRONIDAZOLE
     Indication: AMOEBIC DYSENTERY
     Dosage: IN THE MORNING
     Route: 042
     Dates: start: 2017

REACTIONS (7)
  - Paraesthesia [Unknown]
  - Hemiparaesthesia [Unknown]
  - Dyspnoea [Unknown]
  - Swelling [Unknown]
  - Paraesthesia oral [Unknown]
  - Throat tightness [Unknown]
  - Neuropathy peripheral [Unknown]

NARRATIVE: CASE EVENT DATE: 2017
